FAERS Safety Report 22050423 (Version 16)
Quarter: 2023Q4

REPORT INFORMATION
  Report Type: Spontaneous
  Country: NZ (occurrence: NZ)
  Receive Date: 20230301
  Receipt Date: 20231228
  Transmission Date: 20240110
  Serious: Yes (Life-Threatening, Hospitalization, Other)
  Sender: FDA-Public Use
  Company Number: NZ-MYLANLABS-2022M1049210

PATIENT
  Age: 70 Year
  Sex: Female

DRUGS (2)
  1. CLOZARIL [Suspect]
     Active Substance: CLOZAPINE
     Indication: Schizophrenia
     Dosage: UNK
     Route: 048
     Dates: start: 20180918, end: 20220913
  2. CLOZARIL [Suspect]
     Active Substance: CLOZAPINE
     Dosage: UNK
     Route: 048
     Dates: start: 20230125

REACTIONS (12)
  - Neutropenia [Not Recovered/Not Resolved]
  - Schizophrenia [Unknown]
  - Mental impairment [Unknown]
  - Major depression [Unknown]
  - Terminal state [Unknown]
  - Acute myeloid leukaemia [Unknown]
  - White blood cell count decreased [Recovered/Resolved]
  - Mean cell volume increased [Unknown]
  - Mean cell haemoglobin increased [Unknown]
  - Monocyte count decreased [Not Recovered/Not Resolved]
  - Platelet count decreased [Not Recovered/Not Resolved]
  - Therapy cessation [Unknown]

NARRATIVE: CASE EVENT DATE: 20220627
